FAERS Safety Report 13946271 (Version 1)
Quarter: 2017Q3

REPORT INFORMATION
  Report Type: Spontaneous
  Country: DE (occurrence: DE)
  Receive Date: 20170907
  Receipt Date: 20170907
  Transmission Date: 20171128
  Serious: Yes (Congenital Anomaly, Other)
  Sender: FDA-Public Use
  Company Number: DE-MYLANLABS-2017M1054232

PATIENT
  Age: 1 Day
  Sex: Male
  Weight: 4.15 kg

DRUGS (5)
  1. QUETIAPINE. [Suspect]
     Active Substance: QUETIAPINE
     Indication: SLEEP DISORDER
     Dosage: 50 [MG/D ]
     Route: 064
     Dates: start: 20160403, end: 20161230
  2. ABILIFY [Suspect]
     Active Substance: ARIPIPRAZOLE
     Indication: SCHIZOAFFECTIVE DISORDER
     Dosage: 10 [MG/D ]
     Route: 064
     Dates: start: 20160403, end: 20161225
  3. FOLSAEURE [Concomitant]
     Active Substance: FOLIC ACID
     Indication: PROPHYLAXIS OF NEURAL TUBE DEFECT
     Route: 064
     Dates: start: 20160505, end: 20160805
  4. AKINETON [Concomitant]
     Active Substance: BIPERIDEN HYDROCHLORIDE
     Indication: EXTRAPYRAMIDAL DISORDER
     Dosage: 25 [MG/D ]
     Route: 064
  5. GRIPPEIMPFSTOFF [Concomitant]
     Active Substance: INFLUENZA VIRUS VACCINE
     Indication: IMMUNISATION
     Route: 064

REACTIONS (6)
  - Transposition of the great vessels [Unknown]
  - Foetal exposure during pregnancy [Recovered/Resolved]
  - Large for dates baby [Recovered/Resolved]
  - Ventricular septal defect [Unknown]
  - Atrial septal defect [Unknown]
  - Aortic stenosis [Unknown]

NARRATIVE: CASE EVENT DATE: 20170104
